FAERS Safety Report 11741156 (Version 2)
Quarter: 2015Q4

REPORT INFORMATION
  Report Type: Spontaneous
  Country: JP (occurrence: JP)
  Receive Date: 20151116
  Receipt Date: 20151124
  Transmission Date: 20160304
  Serious: Yes (Other)
  Sender: FDA-Public Use
  Company Number: JP-HOSPIRA-3076022

PATIENT
  Age: 68 Year
  Sex: Female

DRUGS (3)
  1. DOCETAXEL. [Suspect]
     Active Substance: DOCETAXEL
     Indication: OESOPHAGEAL CARCINOMA
     Dosage: ON DAY 1 AND 11
  2. CISPLATIN. [Suspect]
     Active Substance: CISPLATIN
     Indication: OESOPHAGEAL CARCINOMA
     Dosage: ON DAY 1 TO 20
  3. 5-FU                               /00098801/ [Suspect]
     Active Substance: FLUOROURACIL
     Indication: OESOPHAGEAL CARCINOMA
     Dosage: ON DAY 1 TO 20

REACTIONS (4)
  - Cytomegalovirus infection [Recovered/Resolved]
  - Decreased appetite [Recovering/Resolving]
  - Lymphopenia [Recovered/Resolved]
  - Weight decreased [Recovering/Resolving]
